FAERS Safety Report 5374115-8 (Version None)
Quarter: 2007Q2

REPORT INFORMATION
  Report Type: 
  Country: None (occurrence: None)
  Receive Date: 20070627
  Receipt Date: 20070615
  Transmission Date: 20071010
  Serious: Yes (Hospitalization)
  Sender: FDA-Public Use
  Company Number: GXKR2007JP05178

PATIENT
  Age: 61 Year
  Sex: Male

DRUGS (3)
  1. SULFAMETHOXAZOLE AND TRIMETHOPRIM [Suspect]
     Indication: PROPHYLAXIS
  2. CYCLOPHOSPHAMIDE [Suspect]
     Indication: INTERSTITIAL LUNG DISEASE
     Dosage: SEE IMGE
     Route: 042
     Dates: start: 20040801
  3. CORTICOSTEROIDS (NO INGREDIENTS/SUBSTANCES) [Concomitant]

REACTIONS (15)
  - BLOOD PRESSURE SYSTOLIC DECREASED [None]
  - CONDITION AGGRAVATED [None]
  - DERMATITIS EXFOLIATIVE [None]
  - DISEASE PROGRESSION [None]
  - DRUG HYPERSENSITIVITY [None]
  - DRUG RASH WITH EOSINOPHILIA AND SYSTEMIC SYMPTOMS [None]
  - EPIDERMAL NECROSIS [None]
  - HYPOCAPNIA [None]
  - HYPOXIA [None]
  - INTERSTITIAL LUNG DISEASE [None]
  - LYMPHOCYTE MORPHOLOGY ABNORMAL [None]
  - MUMPS ANTIBODY TEST POSITIVE [None]
  - NASOPHARYNGITIS [None]
  - PARAINFLUENZAE VIRUS INFECTION [None]
  - VIRUS SEROLOGY TEST POSITIVE [None]
